FAERS Safety Report 8132134-2 (Version None)
Quarter: 2012Q1

REPORT INFORMATION
  Report Type: 
  Country: None (occurrence: None)
  Receive Date: 20120213
  Receipt Date: 20120209
  Transmission Date: 20120608
  Serious: Yes (Other)
  Sender: FDA-Public Use
  Company Number: US-PFIZER INC-2012027844

PATIENT
  Sex: Female
  Weight: 63.492 kg

DRUGS (20)
  1. LYRICA [Suspect]
     Dosage: 150 MG, 2X/DAY
     Route: 048
     Dates: start: 20110101, end: 20110101
  2. LUNESTA [Concomitant]
     Indication: INSOMNIA
     Dosage: UNK, AS NEEDED
  3. VITAMIN B-12 [Concomitant]
     Indication: VITAMIN B12 DEFICIENCY
     Dosage: UNK, MONTHLY
  4. ACCUPRIL [Concomitant]
     Indication: DYSPNOEA
     Dosage: UNK
     Dates: start: 20060101
  5. LYRICA [Suspect]
     Indication: NEUROPATHY PERIPHERAL
     Dosage: 200 MG, 2X/DAY
     Route: 048
     Dates: start: 20100101
  6. LYRICA [Suspect]
     Dosage: 50 MG, 2X/DAY
     Route: 048
     Dates: start: 20110101, end: 20110101
  7. NEURONTIN [Suspect]
     Indication: NEUROPATHY PERIPHERAL
     Dosage: 25 MG, DAILY
  8. TRILIPIX [Concomitant]
     Dosage: UNK
  9. ASPIRIN [Concomitant]
     Indication: ANTICOAGULANT THERAPY
     Dosage: 81 MG, DAILY
  10. LYRICA [Suspect]
     Dosage: 200 MG, 2X/DAY
     Route: 048
     Dates: start: 20110101
  11. BONIVA [Concomitant]
     Indication: OSTEOPOROSIS
     Dosage: 150 MG, MONTHLY
  12. ACCUPRIL [Concomitant]
     Indication: ANTICOAGULANT THERAPY
  13. LYRICA [Suspect]
     Dosage: 200 MG DAILY
  14. NEURONTIN [Suspect]
     Dosage: 300 MG, DAILY
     Dates: end: 20110101
  15. TRILIPIX [Concomitant]
     Indication: BLOOD CHOLESTEROL INCREASED
     Dosage: 135 MG, DAILY
  16. LEVOXYL [Concomitant]
     Indication: THYROID DISORDER
     Dosage: 75 MG, DAILY
  17. NEURONTIN [Suspect]
     Dosage: 50 MG, DAILY
  18. VITAMIN D [Concomitant]
     Dosage: UNK
  19. VITAMIN B-12 [Concomitant]
     Dosage: UNK
  20. CYMBALTA [Concomitant]
     Dosage: 30 MG, DAILY

REACTIONS (7)
  - DRUG INTOLERANCE [None]
  - DRUG INEFFECTIVE [None]
  - DYSARTHRIA [None]
  - HYPOTENSION [None]
  - GAIT DISTURBANCE [None]
  - DYSPHEMIA [None]
  - DIZZINESS [None]
